FAERS Safety Report 9039302 (Version 1)
Quarter: 2013Q1

REPORT INFORMATION
  Report Type: Report from Study
  Country: US (occurrence: US)
  Receive Date: 20130129
  Receipt Date: 20130129
  Transmission Date: 20140127
  Serious: No
  Sender: FDA-Public Use
  Company Number: US-ABBOTT-12P-163-0931593-00

PATIENT
  Age: 68 Year
  Sex: Female

DRUGS (18)
  1. HUMIRA 40 MG/0.8 ML PEN [Suspect]
     Indication: RHEUMATOID ARTHRITIS
     Dates: start: 20110406
  2. FOLIC ACID [Concomitant]
     Indication: SUPPLEMENTATION THERAPY
     Dosage: 1MG DAILY
  3. VITAMIN D [Concomitant]
     Indication: SUPPLEMENTATION THERAPY
     Dosage: 50000 UNITS WEEKLY
  4. SYNTHROID [Concomitant]
     Indication: HYPOTHYROIDISM
     Dosage: 100MCG DAILY
  5. PROTONIX [Concomitant]
     Indication: GASTROOESOPHAGEAL REFLUX DISEASE
     Dosage: 40MG DAILY
  6. ATARAX [Concomitant]
     Indication: URTICARIA
  7. ATENOLOL [Concomitant]
     Indication: HYPERTENSION
     Dosage: 75MG DAILY
  8. PRAVASTATIN [Concomitant]
     Indication: BLOOD CHOLESTEROL INCREASED
     Dosage: 20MG DAILY
  9. ZOLOFT [Concomitant]
     Indication: DEPRESSION
     Dosage: 100MG DAILY
  10. NASAL SPRAY [Concomitant]
     Indication: SEASONAL ALLERGY
     Route: 045
  11. COQ10 [Concomitant]
     Indication: SUPPLEMENTATION THERAPY
     Dosage: DAILY
  12. TURMERIC [Concomitant]
     Indication: SUPPLEMENTATION THERAPY
  13. OMEGA 3 FISH OIL [Concomitant]
     Indication: SUPPLEMENTATION THERAPY
  14. METHOTREXATE [Concomitant]
     Indication: PRODUCT USED FOR UNKNOWN INDICATION
     Dosage: 2.5 MG ( 6 TABLETS WEEKLY)
     Dates: end: 201203
  15. METHOTREXATE [Concomitant]
     Dosage: 2.5 MG (6 TABLETS WEEKLY)
  16. SULFASALAZINE [Concomitant]
     Indication: PRODUCT USED FOR UNKNOWN INDICATION
     Dosage: 500 MG ONE TABLET TWICE DAILY
  17. SULFASALAZINE [Concomitant]
     Dosage: 500 MG TWO TABS TWICE DAILY
  18. CLARITIN [Concomitant]
     Indication: SEASONAL ALLERGY

REACTIONS (4)
  - Endodontic procedure [Recovering/Resolving]
  - Unevaluable event [Recovering/Resolving]
  - Pain [Recovering/Resolving]
  - Swelling [Recovering/Resolving]
